FAERS Safety Report 16994004 (Version 1)
Quarter: 2019Q4

REPORT INFORMATION
  Report Type: Spontaneous
  Country: US (occurrence: US)
  Receive Date: 20190924
  Receipt Date: 20190924
  Transmission Date: 20200122
  Serious: No
  Sender: FDA-Public Use
  Company Number: None

PATIENT
  Age: 69 Year
  Sex: Female

DRUGS (1)
  1. ERLOTINIB 100MG TAB [Suspect]
     Active Substance: ERLOTINIB
     Route: 048
     Dates: start: 20190114

REACTIONS (5)
  - Decreased appetite [None]
  - Depression [None]
  - Dry mouth [None]
  - Palpitations [None]
  - Anxiety [None]

NARRATIVE: CASE EVENT DATE: 20190924
